FAERS Safety Report 19078754 (Version 1)
Quarter: 2021Q1

REPORT INFORMATION
  Report Type: Other
  Country: CH (occurrence: CH)
  Receive Date: 20210331
  Receipt Date: 20210331
  Transmission Date: 20210420
  Serious: Yes (Hospitalization)
  Sender: FDA-Public Use
  Company Number: CH-VALIDUS PHARMACEUTICALS LLC-CH-2021VAL000265

PATIENT
  Age: 85 Year
  Sex: Male

DRUGS (13)
  1. CALCIPARINE [Concomitant]
     Active Substance: HEPARIN CALCIUM
  2. LASIX [Suspect]
     Active Substance: FUROSEMIDE
     Dosage: 10 MG, QH
     Route: 041
     Dates: start: 20180501
  3. BECOZYME?C FORTE                   /01801501/ [Concomitant]
     Dosage: UNK
  4. CALCIMAGON D3 [Concomitant]
     Active Substance: CALCIUM\CHOLECALCIFEROL
  5. NEPHROTRANS [Concomitant]
     Active Substance: SODIUM BICARBONATE
  6. ANXIOLIT [Concomitant]
     Active Substance: OXAZEPAM
  7. ROCALTROL [Suspect]
     Active Substance: CALCITRIOL
     Dosage: 0.25 UG, QOD; ORAL
     Route: 048
     Dates: start: 20180501
  8. ALBUNORM [Concomitant]
     Active Substance: ALBUMIN HUMAN
  9. NEXIUM [Suspect]
     Active Substance: ESOMEPRAZOLE MAGNESIUM
     Dosage: 20, MG, QD
     Route: 048
     Dates: start: 20180501
  10. IMPORTAL [Concomitant]
     Active Substance: LACTITOL
  11. ACIDUM FOLICUM [Concomitant]
     Active Substance: FOLIC ACID
     Dosage: UNK
  12. HAEMOPRESSIN [Concomitant]
  13. BENERVA [Concomitant]
     Active Substance: THIAMINE HYDROCHLORIDE

REACTIONS (1)
  - Renal impairment [Not Recovered/Not Resolved]

NARRATIVE: CASE EVENT DATE: 20180510
